FAERS Safety Report 18480381 (Version 1)
Quarter: 2020Q4

REPORT INFORMATION
  Report Type: Spontaneous
  Country: TR (occurrence: TR)
  Receive Date: 20201109
  Receipt Date: 20201109
  Transmission Date: 20210114
  Serious: Yes (Hospitalization)
  Sender: FDA-Public Use
  Company Number: TR-LUPIN PHARMACEUTICALS INC.-2020-08386

PATIENT
  Age: 36 Year
  Sex: Female

DRUGS (4)
  1. BLACK COHOSH [CIMICIFUGA RACEMOSA] [Interacting]
     Active Substance: BLACK COHOSH
     Indication: PREMENSTRUAL PAIN
     Dosage: 40 MILLIGRAM, QD (EXTRACT)
     Route: 065
  2. BLACK COHOSH [CIMICIFUGA RACEMOSA] [Interacting]
     Active Substance: BLACK COHOSH
     Indication: PREMENSTRUAL DYSPHORIC DISORDER
  3. DULOXETINE. [Suspect]
     Active Substance: DULOXETINE
     Indication: DEPRESSION
     Dosage: 30 MILLIGRAM, QD
     Route: 065
  4. MODAFINIL. [Interacting]
     Active Substance: MODAFINIL
     Indication: DEPRESSION
     Dosage: 100 MILLIGRAM, QD
     Route: 065

REACTIONS (2)
  - Mania [Recovered/Resolved]
  - Drug interaction [Unknown]
